FAERS Safety Report 15087424 (Version 2)
Quarter: 2018Q4

REPORT INFORMATION
  Report Type: Spontaneous
  Country: IT (occurrence: IT)
  Receive Date: 20180628
  Receipt Date: 20181022
  Transmission Date: 20190204
  Serious: Yes (Hospitalization)
  Sender: FDA-Public Use
  Company Number: IT-TEVA-777085ACC

PATIENT
  Age: 49 Year
  Sex: Male

DRUGS (4)
  1. PIPERACILLIN SODIUM + TAZOBACTAM SODIUM  POWDER AND SOLVENT FOR SOLUTI [Suspect]
     Active Substance: PIPERACILLIN SODIUM\TAZOBACTAM SODIUM
     Indication: PRODUCT USED FOR UNKNOWN INDICATION
     Dosage: 13.5 GRAM DAILY;
     Route: 042
     Dates: start: 20170425, end: 20170508
  2. CEFIXIME. [Suspect]
     Active Substance: CEFIXIME
     Indication: PRODUCT USED FOR UNKNOWN INDICATION
     Dosage: .4 GRAM DAILY;
     Route: 048
     Dates: start: 20170509, end: 20170516
  3. ESOMEPRAZOLE. [Concomitant]
     Active Substance: ESOMEPRAZOLE MAGNESIUM
     Indication: PRODUCT USED FOR UNKNOWN INDICATION
     Route: 065
  4. LEVOFLOXACIN. [Suspect]
     Active Substance: LEVOFLOXACIN
     Indication: PRODUCT USED FOR UNKNOWN INDICATION
     Dosage: 500 MILLIGRAM DAILY;
     Route: 048
     Dates: start: 20170509, end: 20170516

REACTIONS (3)
  - Tendonitis [Recovered/Resolved]
  - Urticaria [Recovered/Resolved]
  - Erythema [Recovered/Resolved]

NARRATIVE: CASE EVENT DATE: 20170511
